FAERS Safety Report 9257729 (Version 1)
Quarter: 2013Q2

REPORT INFORMATION
  Report Type: Spontaneous
  Country: US (occurrence: None)
  Receive Date: 20130424
  Receipt Date: 20130424
  Transmission Date: 20140414
  Serious: Yes (Other)
  Sender: FDA-Public Use
  Company Number: None

PATIENT
  Age: 45 Year
  Sex: Female
  Weight: 58.97 kg

DRUGS (2)
  1. CAPRELSA [Suspect]
     Indication: MEDULLARY THYROID CANCER
     Dosage: 2 TABLET ONCE A DAY PO
     Dates: start: 201104
  2. CAPRELSA [Suspect]
     Indication: METASTASIS
     Dosage: 2 TABLET ONCE A DAY PO
     Dates: start: 201104

REACTIONS (7)
  - Dehydration [None]
  - Fatigue [None]
  - Diarrhoea [None]
  - Nausea [None]
  - Impaired work ability [None]
  - Product label issue [None]
  - Food interaction [None]
